FAERS Safety Report 8494351-1 (Version None)
Quarter: 2012Q2

REPORT INFORMATION
  Report Type: 
  Country: None (occurrence: None)
  Receive Date: 20120628
  Receipt Date: 20120619
  Transmission Date: 20120825
  Serious: Yes (Hospitalization, Other)
  Sender: FDA-Public Use
  Company Number: FK201201713

PATIENT
  Age: 6 Year
  Sex: Female

DRUGS (1)
  1. VALPROATE SODIUM [Suspect]
     Indication: CONVULSION
     Dosage: 30MG/KG

REACTIONS (6)
  - OPISTHOTONUS [None]
  - DRUG HYPERSENSITIVITY [None]
  - CEREBRAL ATROPHY [None]
  - HYPERTONIA [None]
  - CONVULSION [None]
  - PYREXIA [None]
